FAERS Safety Report 5145867-7 (Version None)
Quarter: 2006Q4

REPORT INFORMATION
  Report Type: 
  Country: None (occurrence: None)
  Receive Date: 20061108
  Receipt Date: 20061024
  Transmission Date: 20070319
  Serious: Yes (Hospitalization, Other)
  Sender: FDA-Public Use
  Company Number: US-AMGEN-US197942

PATIENT
  Sex: Female

DRUGS (12)
  1. ENBREL [Suspect]
     Indication: RHEUMATOID ARTHRITIS
  2. PREDNISONE TAB [Concomitant]
     Route: 048
     Dates: start: 19970106
  3. HUMIRA [Concomitant]
     Route: 058
     Dates: start: 20040301
  4. METHOTREXATE [Concomitant]
  5. HYDROCHLOROTHIAZIDE [Concomitant]
  6. FOSAMAX [Concomitant]
  7. ALTACE [Concomitant]
  8. FOLIC ACID [Concomitant]
  9. ADVAIR DISKUS 100/50 [Concomitant]
     Route: 055
  10. COMBIVENT [Concomitant]
     Route: 055
  11. PRILOSEC [Concomitant]
  12. ZYRTEC [Concomitant]

REACTIONS (8)
  - CHRONIC OBSTRUCTIVE PULMONARY DISEASE [None]
  - CONDITION AGGRAVATED [None]
  - CREPITATIONS [None]
  - DIARRHOEA [None]
  - HYPOKALAEMIA [None]
  - HYPONATRAEMIA [None]
  - TRANSIENT ISCHAEMIC ATTACK [None]
  - WHEEZING [None]
